FAERS Safety Report 11195367 (Version 1)
Quarter: 2015Q2

REPORT INFORMATION
  Report Type: Spontaneous
  Country: US (occurrence: None)
  Receive Date: 20150603
  Receipt Date: 20150603
  Transmission Date: 20150821
  Serious: No
  Sender: FDA-Public Use
  Company Number: 2014TASUS000466

PATIENT
  Age: 31 Year
  Sex: Female
  Weight: 66 kg

DRUGS (9)
  1. FLUOXETINE [Concomitant]
     Active Substance: FLUOXETINE\FLUOXETINE HYDROCHLORIDE
  2. SPRINTEC (ETHINYLESTRADIOL, NORGESTIMATE) [Concomitant]
  3. HETLIOZ [Suspect]
     Active Substance: TASIMELTEON
     Indication: CIRCADIAN RHYTHM SLEEP DISORDER
     Route: 048
     Dates: start: 20140723
  4. ACIDOPHILUS (LACTOBACILLUS ACIDOPHILUS) [Concomitant]
  5. LOMOTIL (ATROPINE SULFATE, DIPHENOXYLATE HYDROCHLORIDE) [Concomitant]
  6. MULTIVITAMIN (VITAMINS NOS) [Concomitant]
     Active Substance: VITAMINS
  7. LORATADINE. [Concomitant]
     Active Substance: LORATADINE
  8. FIBER (POLYCARBOPHIL CALCIUM) [Concomitant]
     Active Substance: CALCIUM POLYCARBOPHIL
  9. BENTYL (DICYCLOVERINE HYDROCHLORIDE) [Concomitant]

REACTIONS (1)
  - Pollakiuria [None]

NARRATIVE: CASE EVENT DATE: 20140806
